FAERS Safety Report 4846507-4 (Version None)
Quarter: 2005Q4

REPORT INFORMATION
  Report Type: 
  Country: None (occurrence: None)
  Receive Date: 20051206
  Receipt Date: 20051128
  Transmission Date: 20060501
  Serious: Yes (Death)
  Sender: FDA-Public Use
  Company Number: US-ABBOTT-05P-163-0318080-00

PATIENT
  Sex: Female
  Weight: 26.332 kg

DRUGS (9)
  1. BIAXIN [Suspect]
     Indication: MYCOBACTERIUM AVIUM COMPLEX INFECTION
     Route: 048
     Dates: start: 20050811, end: 20051117
  2. SERETIDE MITE [Concomitant]
     Indication: RESPIRATORY DISORDER
     Dosage: 250/50MG
     Route: 055
     Dates: start: 20050701, end: 20051117
  3. SPIRIVA [Concomitant]
     Indication: RESPIRATORY DISORDER
     Route: 055
     Dates: start: 20050801, end: 20051117
  4. AVOLOX [Concomitant]
     Indication: MYCOBACTERIUM AVIUM COMPLEX INFECTION
     Route: 048
     Dates: end: 20051117
  5. OXANDROLONE [Concomitant]
     Indication: MYCOBACTERIUM AVIUM COMPLEX INFECTION
     Route: 048
     Dates: end: 20051117
  6. ETHAMBUTOL [Concomitant]
     Indication: MYCOBACTERIUM AVIUM COMPLEX INFECTION
     Route: 048
     Dates: start: 20040101, end: 20051117
  7. OXYGEN [Concomitant]
     Indication: RESPIRATORY DISORDER
     Dates: start: 20051101, end: 20051117
  8. OXYGEN [Concomitant]
     Dates: start: 20050101, end: 20051101
  9. UNSPECIFIED NEBULIZER [Concomitant]
     Indication: RESPIRATORY DISORDER
     Route: 055
     Dates: start: 20050101, end: 20051117

REACTIONS (2)
  - CARBON DIOXIDE INCREASED [None]
  - MYCOBACTERIUM AVIUM COMPLEX INFECTION [None]
